FAERS Safety Report 5607384-7 (Version None)
Quarter: 2008Q1

REPORT INFORMATION
  Report Type: 
  Country: None (occurrence: None)
  Receive Date: 20080128
  Receipt Date: 20080128
  Transmission Date: 20080703
  Serious: Yes (Hospitalization)
  Sender: FDA-Public Use
  Company Number: None

PATIENT
  Sex: Male
  Weight: 127.4608 kg

DRUGS (3)
  1. XELODA [Suspect]
  2. OXALIPLATIN [Suspect]
  3. ERBITUX [Suspect]

REACTIONS (11)
  - BIPOLAR DISORDER [None]
  - CATHETER SEPSIS [None]
  - CATHETER THROMBOSIS [None]
  - CENTRAL LINE INFECTION [None]
  - CHILLS [None]
  - CHRONIC OBSTRUCTIVE PULMONARY DISEASE [None]
  - CYANOSIS [None]
  - DRUG ERUPTION [None]
  - DYSPNOEA [None]
  - OXYGEN SATURATION DECREASED [None]
  - PSEUDOMONAS INFECTION [None]
